FAERS Safety Report 14100358 (Version 1)
Quarter: 2017Q4

REPORT INFORMATION
  Report Type: Spontaneous
  Country: US (occurrence: US)
  Receive Date: 20171017
  Receipt Date: 20171017
  Transmission Date: 20180321
  Serious: No
  Sender: FDA-Public Use
  Company Number: PHEH2017US032899

PATIENT

DRUGS (1)
  1. NATACYN [Suspect]
     Active Substance: NATAMYCIN
     Indication: PRODUCT USED FOR UNKNOWN INDICATION
     Route: 047

REACTIONS (1)
  - Vision blurred [Unknown]
